FAERS Safety Report 5597039-X (Version None)
Quarter: 2007Q4

REPORT INFORMATION
  Report Type: 
  Country: None (occurrence: None)
  Receive Date: 20071221
  Receipt Date: 20071015
  Transmission Date: 20080405
  Serious: No
  Sender: FDA-Public Use
  Company Number: SPV1-2007-04566

PATIENT
  Sex: Male

DRUGS (2)
  1. VYVANSE [Suspect]
     Indication: DISTURBANCE IN ATTENTION
     Dosage: 50 MG
     Dates: start: 20071001
  2. VYVANSE [Suspect]
     Indication: ENERGY INCREASED
     Dosage: 50 MG
     Dates: start: 20071001

REACTIONS (2)
  - OFF LABEL USE [None]
  - RESTLESSNESS [None]
